FAERS Safety Report 8533127-3 (Version None)
Quarter: 2012Q3

REPORT INFORMATION
  Report Type: 
  Country: None (occurrence: None)
  Receive Date: 20120724
  Receipt Date: 20120717
  Transmission Date: 20120928
  Serious: Yes (Other)
  Sender: FDA-Public Use
  Company Number: US-JNJFOC-20120709365

PATIENT
  Age: 73 Year
  Sex: Female

DRUGS (1)
  1. NICOTINE [Suspect]
     Indication: SMOKING CESSATION THERAPY
     Dosage: SINCE 15 YEARS
     Route: 048

REACTIONS (4)
  - INTENTIONAL DRUG MISUSE [None]
  - BREAST CANCER [None]
  - TOOTH DISCOLOURATION [None]
  - NICOTINE DEPENDENCE [None]
